FAERS Safety Report 24995416 (Version 1)
Quarter: 2025Q1

REPORT INFORMATION
  Report Type: Spontaneous
  Country: US (occurrence: US)
  Receive Date: 20250221
  Receipt Date: 20250221
  Transmission Date: 20250409
  Serious: Yes (Other)
  Sender: PFIZER
  Company Number: US-PFIZER INC-202400043861

PATIENT
  Age: 8 Year
  Sex: Male

DRUGS (1)
  1. BENEFIX [Suspect]
     Active Substance: COAGULATION FACTOR IX RECOMBINANT HUMAN\ISOPROPYL ALCOHOL
     Indication: Haemorrhage
     Dosage: 2200 IU (=5% )/ 2300 UI (+5% ) = 100 IU/KG DAILY X 1 ON-DEMAND FOR A BLEED

REACTIONS (1)
  - Haemarthrosis [Unknown]
